FAERS Safety Report 18528080 (Version 1)
Quarter: 2020Q4

REPORT INFORMATION
  Report Type: Spontaneous
  Country: DE (occurrence: DE)
  Receive Date: 20201120
  Receipt Date: 20201120
  Transmission Date: 20210114
  Serious: Yes (Hospitalization, Other)
  Sender: FDA-Public Use
  Company Number: DE-009507513-2011DEU009267

PATIENT
  Age: 33 Year
  Sex: Female

DRUGS (3)
  1. PUREGON (FOLLITROPIN BETA) [Suspect]
     Active Substance: FOLLITROPIN
     Dosage: 50 INTERNATIONAL UNIT, 4 TOTAL
  2. PUREGON (FOLLITROPIN BETA) [Suspect]
     Active Substance: FOLLITROPIN
     Indication: ASSISTED REPRODUCTIVE TECHNOLOGY
     Dosage: 75 INTERNATIONAL UNIT, 8 TOTAL
  3. OVITRELLE [Suspect]
     Active Substance: CHORIOGONADOTROPIN ALFA
     Indication: OVULATION INDUCTION
     Dosage: UNK

REACTIONS (3)
  - Ascites [Recovered/Resolved]
  - Ovarian hyperstimulation syndrome [Recovered/Resolved]
  - Ovarian enlargement [Recovered/Resolved]

NARRATIVE: CASE EVENT DATE: 20200905
